FAERS Safety Report 4285484-4 (Version None)
Quarter: 2004Q1

REPORT INFORMATION
  Report Type: 
  Country: None (occurrence: None)
  Receive Date: 20040202
  Receipt Date: 20040120
  Transmission Date: 20041129
  Serious: Yes (Death, Hospitalization)
  Sender: FDA-Public Use
  Company Number: 03P-163-0240747-00

PATIENT
  Age: 60 Year
  Sex: Female

DRUGS (5)
  1. HUMIRA [Suspect]
     Indication: RHEUMATOID ARTHRITIS
     Dosage: 40 MG, 1 IN 2 WK, SUBCUTANEOUS
     Route: 058
     Dates: start: 20030701, end: 20031110
  2. FUROSEMIDE [Concomitant]
  3. PREDNISONE [Concomitant]
  4. LEFLUNOMIDE [Concomitant]
  5. OXYGEN [Concomitant]

REACTIONS (18)
  - ABASIA [None]
  - ARTHRALGIA [None]
  - ARTHROPATHY [None]
  - BACK PAIN [None]
  - CATARACT [None]
  - DIARRHOEA [None]
  - GENERAL PHYSICAL HEALTH DETERIORATION [None]
  - MOBILITY DECREASED [None]
  - MUSCLE CRAMP [None]
  - NIGHT SWEATS [None]
  - OEDEMA PERIPHERAL [None]
  - PAIN IN EXTREMITY [None]
  - PERICARDIAL EFFUSION [None]
  - PLEURAL EFFUSION [None]
  - PROTEINURIA [None]
  - PRURITUS [None]
  - PULMONARY EMBOLISM [None]
  - RED BLOOD CELL SEDIMENTATION RATE INCREASED [None]
